FAERS Safety Report 5518986-0 (Version None)
Quarter: 2007Q4

REPORT INFORMATION
  Report Type: 
  Country: None (occurrence: None)
  Receive Date: 20071114
  Receipt Date: 20071114
  Transmission Date: 20080405
  Serious: No
  Sender: FDA-Public Use
  Company Number: None

PATIENT
  Age: 52 Year
  Sex: Female
  Weight: 90.7194 kg

DRUGS (1)
  1. FOSAMAX [Suspect]
     Indication: OSTEOPOROSIS
     Dosage: 1 TABLET ONCE A WEEK PO
     Route: 048
     Dates: start: 20060802, end: 20071113

REACTIONS (3)
  - ARRHYTHMIA SUPRAVENTRICULAR [None]
  - DIZZINESS [None]
  - VENTRICULAR ARRHYTHMIA [None]
